FAERS Safety Report 10925651 (Version 1)
Quarter: 2015Q1

REPORT INFORMATION
  Report Type: Spontaneous
  Country: US (occurrence: None)
  Receive Date: 20150316
  Receipt Date: 20150316
  Transmission Date: 20150721
  Serious: No
  Sender: FDA-Public Use
  Company Number: None

PATIENT
  Age: 63 Year
  Sex: Female

DRUGS (1)
  1. SIMPONI ARIA [Suspect]
     Active Substance: GOLIMUMAB
     Indication: RHEUMATOID ARTHRITIS
     Dosage: EVERY 8 WEEKS
     Route: 042
     Dates: start: 20131130, end: 20150313

REACTIONS (1)
  - Syncope [None]

NARRATIVE: CASE EVENT DATE: 20150313
